FAERS Safety Report 9445416 (Version 1)
Quarter: 2013Q3

REPORT INFORMATION
  Report Type: Spontaneous
  Country: IT (occurrence: None)
  Receive Date: 20130802
  Receipt Date: 20130802
  Transmission Date: 20140515
  Serious: Yes (Life-Threatening, Other)
  Sender: FDA-Public Use
  Company Number: GER/ITL/13/0033583

PATIENT
  Age: 48 Year
  Sex: Male
  Weight: 100 kg

DRUGS (3)
  1. RISPERIDONE (RISPERIDONE) [Suspect]
     Indication: PRODUCT USED FOR UNKNOWN INDICATION
     Route: 048
  2. FLURAZEPAM (FLURAZEPAM) [Concomitant]
  3. LAMOTRIGINE (LAMOTRIGINE) [Concomitant]

REACTIONS (2)
  - Coma [None]
  - Overdose [None]
